FAERS Safety Report 7734970-0 (Version None)
Quarter: 2011Q3

REPORT INFORMATION
  Report Type: 
  Country: None (occurrence: None)
  Receive Date: 20110907
  Receipt Date: 20110829
  Transmission Date: 20111222
  Serious: Yes (Hospitalization)
  Sender: FDA-Public Use
  Company Number: PHHY2011ES76757

PATIENT
  Age: 77 Year
  Sex: Female

DRUGS (5)
  1. CLARITHROMYCIN [Suspect]
     Indication: PNEUMONIA
     Dosage: 1 G, BID
     Dates: start: 20110504, end: 20110510
  2. SULPIRIDE [Concomitant]
     Dosage: UNK
  3. AMOXICILLIN AND CLAVULANATE POTASSIUM [Concomitant]
     Dosage: UNK
  4. SINTROM [Interacting]
     Indication: ATRIAL FIBRILLATION
     Dosage: 4 MG, UNK
     Route: 048
     Dates: start: 20070101, end: 20110505
  5. METHYLPREDNISOLONE [Concomitant]
     Dosage: UNK

REACTIONS (3)
  - DRUG INTERACTION [None]
  - COAGULOPATHY [None]
  - ANAEMIA [None]
